FAERS Safety Report 9012204 (Version 1)
Quarter: 2013Q1

REPORT INFORMATION
  Report Type: Spontaneous
  Country: US (occurrence: US)
  Receive Date: 20130114
  Receipt Date: 20130114
  Transmission Date: 20140127
  Serious: Yes (Other)
  Sender: FDA-Public Use
  Company Number: US-009507513-1301USA004162

PATIENT
  Age: 46 Year
  Sex: Female

DRUGS (15)
  1. MONTELUKAST SODIUM [Suspect]
     Indication: ANTICOAGULANT THERAPY
  2. MONTELUKAST SODIUM [Suspect]
     Indication: ASTHMA
  3. MONTELUKAST SODIUM [Suspect]
     Indication: CARDIAC FAILURE
  4. MONTELUKAST SODIUM [Suspect]
     Indication: THROMBOSIS IN DEVICE
  5. SALMETEROL [Suspect]
     Route: 055
  6. SPIRONOLACTONE [Suspect]
  7. MILRINONE [Suspect]
  8. FLUTICASONE PROPIONATE [Suspect]
     Route: 055
  9. PREDNISONE [Suspect]
  10. DIGOXIN [Suspect]
  11. TORSEMIDE [Suspect]
  12. HEPARIN [Suspect]
  13. WARFARIN [Suspect]
  14. CLOPIDOGREL [Suspect]
  15. ASPIRIN [Suspect]

REACTIONS (2)
  - Eosinophilic myocarditis [Unknown]
  - Thrombosis in device [Unknown]
